FAERS Safety Report 16157161 (Version 2)
Quarter: 2019Q2

REPORT INFORMATION
  Report Type: Report from Study
  Country: US (occurrence: US)
  Receive Date: 20190404
  Receipt Date: 20190405
  Transmission Date: 20190711
  Serious: Yes (Other)
  Sender: FDA-Public Use
  Company Number: US-GLAXOSMITHKLINE-US2019GSK057002

PATIENT
  Age: 75 Year
  Sex: Male
  Weight: 66 kg

DRUGS (8)
  1. BUPROPION HYDROCHLORIDE. [Suspect]
     Active Substance: BUPROPION HYDROCHLORIDE
  2. STERAPRED [Concomitant]
     Active Substance: PREDNISONE
  3. DOCUSATE [Concomitant]
     Active Substance: DOCUSATE
  4. ENBREL [Suspect]
     Active Substance: ETANERCEPT
  5. CETIRIZINE [Concomitant]
     Active Substance: CETIRIZINE HYDROCHLORIDE
  6. NICOTINE. [Concomitant]
     Active Substance: NICOTINE
  7. OMEPRAZOLE. [Concomitant]
     Active Substance: OMEPRAZOLE
  8. LIDOCAINE. [Concomitant]
     Active Substance: LIDOCAINE

REACTIONS (10)
  - Hyperhidrosis [Unknown]
  - Constipation [Unknown]
  - Non-small cell lung cancer [Unknown]
  - Adjustment disorder with mixed anxiety and depressed mood [Unknown]
  - Nicotine dependence [Unknown]
  - Tremor [Unknown]
  - Laryngitis [Unknown]
  - Viral upper respiratory tract infection [Unknown]
  - Balance disorder [Unknown]
  - Gastrooesophageal reflux disease [Recovered/Resolved]
